FAERS Safety Report 7000750-7 (Version None)
Quarter: 2010Q3

REPORT INFORMATION
  Report Type: 
  Country: None (occurrence: None)
  Receive Date: 20100920
  Receipt Date: 20090908
  Transmission Date: 20110219
  Serious: No
  Sender: FDA-Public Use
  Company Number: US-ASTRAZENECA-2009UW13294

PATIENT
  Age: 17080 Day
  Sex: Female
  Weight: 108.9 kg

DRUGS (5)
  1. SEROQUEL [Suspect]
     Indication: SCHIZOPHRENIA
     Route: 048
     Dates: start: 20020709, end: 20030924
  2. ZYPREXA [Concomitant]
     Indication: SCHIZOPHRENIA
     Dates: start: 20031001, end: 20041001
  3. ABILIFY [Concomitant]
     Indication: BIPOLAR DISORDER
     Dates: start: 19950101
  4. DEPAKOTE [Concomitant]
     Indication: BIPOLAR DISORDER
     Dates: start: 19950101
  5. PAXIL [Concomitant]
     Indication: DEPRESSION
     Dates: start: 19950101

REACTIONS (2)
  - OBESITY [None]
  - TYPE 2 DIABETES MELLITUS [None]
